FAERS Safety Report 20641178 (Version 1)
Quarter: 2022Q1

REPORT INFORMATION
  Report Type: Spontaneous
  Country: CN (occurrence: CN)
  Receive Date: 20220327
  Receipt Date: 20220327
  Transmission Date: 20220423
  Serious: Yes (Hospitalization)
  Sender: FDA-Public Use
  Company Number: CN-BAXTER-2022BAX006402

PATIENT
  Age: 19 Year
  Sex: Female
  Weight: 41 kg

DRUGS (6)
  1. CYCLOPHOSPHAMIDE [Suspect]
     Active Substance: CYCLOPHOSPHAMIDE
     Indication: Coagulation test abnormal
     Dosage: ROUTE: INTRA-PUMP INJECTION, 0.9% NS (500 ML) + CYCLOPHOSPHAMIDE (1 G), ST PUMP
     Route: 050
     Dates: start: 20220315, end: 20220315
  2. SODIUM CHLORIDE [Suspect]
     Active Substance: SODIUM CHLORIDE
     Indication: Medication dilution
     Dosage: ROUTE: INTRA-PUMP INJECTION, 0.9% NS (500 ML) + CYCLOPHOSPHAMIDE (1 G), ST PUMP
     Route: 050
     Dates: start: 20220315, end: 20220315
  3. SODIUM CHLORIDE [Suspect]
     Active Substance: SODIUM CHLORIDE
     Dosage: ROUTE: INTRA-PUMP INJECTION, 0.9% NS (50 ML) + DAUNORUBICIN HYDROCHLORIDE (50 MG), ST PUMP
     Route: 050
     Dates: start: 20220315, end: 20220315
  4. SODIUM CHLORIDE [Suspect]
     Active Substance: SODIUM CHLORIDE
     Dosage: ROUTE: INTRA-PUMP INJECTION, 0.9% NS (50 ML) + VINCRISTINE SULFATE (2 MG), ST PUMP
     Route: 050
     Dates: start: 20220315, end: 20220315
  5. DAUNORUBICIN HYDROCHLORIDE [Suspect]
     Active Substance: DAUNORUBICIN HYDROCHLORIDE
     Indication: Coagulation test abnormal
     Dosage: ROUTE: INTRA-PUMP INJECTION, 0.9% NS (50 ML) + DAUNORUBICIN HYDROCHLORIDE (50 MG), ST PUMP
     Route: 050
     Dates: start: 20220315, end: 20220315
  6. VINCRISTINE SULFATE [Suspect]
     Active Substance: VINCRISTINE SULFATE
     Indication: Coagulation test abnormal
     Dosage: ROUTE: INTRA-PUMP INJECTION, 0.9% NS (50 ML) + VINCRISTINE SULFATE (2 MG), ST PUMP
     Route: 050
     Dates: start: 20220315, end: 20220315

REACTIONS (2)
  - Nausea [Recovering/Resolving]
  - Vomiting [Recovering/Resolving]

NARRATIVE: CASE EVENT DATE: 20220315
